FAERS Safety Report 5691978-7 (Version None)
Quarter: 2008Q1

REPORT INFORMATION
  Report Type: 
  Country: None (occurrence: None)
  Receive Date: 20080331
  Receipt Date: 20080313
  Transmission Date: 20080703
  Serious: Yes (Life-Threatening, Hospitalization, Other)
  Sender: FDA-Public Use
  Company Number: STI-2007-01889

PATIENT
  Age: 80 Year
  Sex: Male

DRUGS (2)
  1. ERYTHROMYCIN [Suspect]
     Dosage: 2000 MG (500 MG, 4 IN 1 DAYS)
     Route: 048
  2. SIMVASTATIN [Suspect]
     Route: 048

REACTIONS (8)
  - ABASIA [None]
  - ASPARTATE AMINOTRANSFERASE INCREASED [None]
  - DRUG INTERACTION [None]
  - HAEMODIALYSIS [None]
  - MYALGIA [None]
  - MYOGLOBINURIA [None]
  - RENAL FAILURE [None]
  - RHABDOMYOLYSIS [None]
